FAERS Safety Report 7532797-6 (Version None)
Quarter: 2011Q2

REPORT INFORMATION
  Report Type: 
  Country: None (occurrence: None)
  Receive Date: 20110608
  Receipt Date: 20110530
  Transmission Date: 20111010
  Serious: Yes (Life-Threatening, Hospitalization, Other)
  Sender: FDA-Public Use
  Company Number: B0724625A

PATIENT

DRUGS (1)
  1. LANOXIN [Suspect]
     Route: 065

REACTIONS (1)
  - OVERDOSE [None]
